FAERS Safety Report 19377473 (Version 1)
Quarter: 2021Q2

REPORT INFORMATION
  Report Type: Spontaneous
  Country: FR (occurrence: FR)
  Receive Date: 20210605
  Receipt Date: 20210605
  Transmission Date: 20210717
  Serious: Yes (Hospitalization)
  Sender: FDA-Public Use
  Company Number: FR-TEVA-2021-FR-1918552

PATIENT
  Age: 82 Year
  Sex: Male
  Weight: 75 kg

DRUGS (12)
  1. DILTIAZEM (CHLORHYDRATE DE) [Suspect]
     Active Substance: DILTIAZEM HYDROCHLORIDE
     Indication: HYPERTENSION
     Dosage: 300MG
     Route: 048
     Dates: end: 20210512
  2. MONOPROST 50 MICROGRAMMES/ML, COLLYRE EN SOLUTION EN RECIPIENT UNIDOSE [Concomitant]
     Active Substance: LATANOPROST
  3. SPIRIVA RESPIMAT [Concomitant]
     Active Substance: TIOTROPIUM BROMIDE
     Indication: ASTHMA
     Dosage: 2DF
     Route: 055
     Dates: start: 201910
  4. SOLUPRED 5 MG, COMPRIME ORODISPERSIBLE [Concomitant]
     Dosage: 5MG
     Route: 048
     Dates: start: 2019
  5. DALACINE [Concomitant]
     Active Substance: CLINDAMYCIN
     Indication: TOOTH ABSCESS
     Dosage: 1GM
     Route: 048
     Dates: start: 20210505, end: 20210510
  6. ESIDREX [Suspect]
     Active Substance: HYDROCHLOROTHIAZIDE
     Indication: HYPERTENSION
     Dosage: 25MG
     Route: 048
     Dates: end: 20210512
  7. FASENRA [Concomitant]
     Active Substance: BENRALIZUMAB
     Indication: ASTHMA
     Dosage: 1 INJECTION EVERY 6 WEEKS, 30MG
     Route: 059
     Dates: start: 20190911
  8. SYMBICORT [Concomitant]
     Active Substance: BUDESONIDE\FORMOTEROL FUMARATE DIHYDRATE
     Indication: ASTHMA
     Dosage: 2DF,POWDER FOR INHALATION
     Route: 055
     Dates: start: 201910
  9. OXEOL 10 MG, COMPRIME SECABLE [Concomitant]
     Indication: ASTHMA
     Dosage: 10MG,SCORED
     Route: 048
     Dates: start: 201910
  10. AMOXICILLINE [Concomitant]
     Active Substance: AMOXICILLIN
     Indication: TOOTH ABSCESS
     Dosage: 1GM
     Route: 048
     Dates: start: 20210505, end: 20210510
  11. VALSARTAN. [Concomitant]
     Active Substance: VALSARTAN
     Indication: HYPERTENSION
     Dosage: 160MG
     Route: 048
  12. SPAGULAX [Concomitant]
     Active Substance: PLANTAGO OVATA SEED
     Indication: CONSTIPATION
     Dosage: 1 TO 2 SACHETS PER DAY AS NEEDED
     Route: 048

REACTIONS (2)
  - Hypokalaemia [Recovered/Resolved]
  - Hyponatraemia [Recovered/Resolved]

NARRATIVE: CASE EVENT DATE: 20210510
